FAERS Safety Report 9437869 (Version 1)
Quarter: 2013Q3

REPORT INFORMATION
  Report Type: Other
  Country: KR (occurrence: KR)
  Receive Date: 20130802
  Receipt Date: 20130802
  Transmission Date: 20140515
  Serious: Yes (Death, Other)
  Sender: FDA-Public Use
  Company Number: KR-BRISTOL-MYERS SQUIBB COMPANY-19133750

PATIENT
  Age: 69 Year
  Sex: Male

DRUGS (6)
  1. ETOPOSIDE [Suspect]
     Route: 042
  2. CYCLOPHOSPHAMIDE [Suspect]
     Dosage: ON DAY 1 OF THE CYCLE.
     Route: 042
  3. ADRIAMYCIN [Suspect]
     Route: 042
  4. VINCRISTINE [Suspect]
     Route: 042
  5. PREDNISOLONE [Suspect]
     Route: 048
  6. LENOGRASTIM [Suspect]
     Dosage: FOR 7 CONSECUTIVE DAYS.
     Route: 042

REACTIONS (3)
  - Interstitial lung disease [Fatal]
  - Neutropenia [Recovering/Resolving]
  - Intestinal haemorrhage [Unknown]
